FAERS Safety Report 10029891 (Version 1)
Quarter: 2014Q1

REPORT INFORMATION
  Report Type: Spontaneous
  Country: US (occurrence: None)
  Receive Date: 20140306
  Receipt Date: 20140306
  Transmission Date: 20141002
  Serious: Yes (Disabling)
  Sender: FDA-Public Use
  Company Number: 163-21880-12122705

PATIENT
  Age: 69 Year
  Sex: Male

DRUGS (32)
  1. REVLIMIB (LENALIDOMIDE) (CAPSULES) [Suspect]
     Indication: PLASMA CELL MYELOMA
     Route: 048
     Dates: start: 201010
  2. ALLOPURINOL (ALLOPURINOL) [Concomitant]
  3. AMLODIPINE BESYLATE (AMLODIPINE BESILATE) [Concomitant]
  4. CEFPODOXINE PROXETIL (CEFPODOXIME PROXETIL) [Concomitant]
  5. DICLOFENAC SODIUM (DICLOFENAC SODIUM) [Concomitant]
  6. DIPHENOXULATE ATROPINE (LOMOTIL) [Concomitant]
  7. FLUCONAZOLE (FLUCONAZOLE) [Concomitant]
  8. FOLIC ACID (FOLIC ACID) [Concomitant]
  9. FUROSEMIDE (FUROSEMIDE) [Concomitant]
  10. HYDROMORPHONE HCL (HYDROCMORPHONE HYDROCHLORIDE) [Concomitant]
  11. KLOR-CON M20 (POTASSIUM CHLORIDE) [Concomitant]
  12. LEVOFLOXACIN (LEVOFLOXACIN) [Concomitant]
  13. LIDOCAINE-PRILOCAINE [Concomitant]
  14. LIDODERM (LIDOCAINE) [Concomitant]
  15. LYRICA (PREGABALIN) [Concomitant]
  16. MAGNESIUM OXIDE (MAGNESIUM OXIDE) [Concomitant]
  17. METOPROLOL TARTRATE (METOPROLOL TARTRATE) [Concomitant]
  18. NEXIUM (ESOMEPRAZOLE) [Concomitant]
  19. ONDASETRON (ONDANSETRON) [Concomitant]
  20. OXYCONTIN (OXYCODONE HYDROCHLORIDE) [Concomitant]
  21. PANTOPRAZOLE SODIUM (PANTOPRAZOLE SODIUM) [Concomitant]
  22. PREDNISOLONE ACETATE (PREDNISOLONE ACETATE) [Concomitant]
  23. PROCHLORPERAZINE MALEATE (PROCHLORPERAZINE MALEATE) [Concomitant]
  24. PYRIDOXINE HCL (PYRIDOXINE HYDROCHLORIDE) [Concomitant]
  25. ROPINIROLE HCL (ROPINROLE HYDROCHLORIDE) [Concomitant]
  26. TRIAMTERENE-HCTZ (DYAZIDE) [Concomitant]
  27. VOLTAREN (DICLOFENAC SODIUM) [Concomitant]
  28. ZOLPIDEM TARTRATE (ZOLPIDEM TARTRATE) [Concomitant]
  29. CYANOCOBALAMIN (CYANOCOBALAMIN) (CYANOCOBALAMIN) [Concomitant]
  30. DEXAMETHASONE (DEXAMETHASONE) [Concomitant]
  31. WARFARIN (WARFARIN) [Concomitant]
  32. MEGESTROL ACETATE (MEGESROL ACETATE) [Concomitant]

REACTIONS (3)
  - Plasma cell myeloma [None]
  - Renal failure acute [None]
  - Anaemia [None]
